FAERS Safety Report 5088689-8 (Version None)
Quarter: 2006Q3

REPORT INFORMATION
  Report Type: 
  Country: None (occurrence: None)
  Receive Date: 20060822
  Receipt Date: 20060810
  Transmission Date: 20061208
  Serious: Yes (Hospitalization, Other)
  Sender: FDA-Public Use
  Company Number: 29625

PATIENT
  Age: 54 Year
  Sex: Male
  Weight: 71 kg

DRUGS (1)
  1. LEUCOVORIN CALCIUM [Suspect]
     Indication: COLORECTAL CANCER
     Dosage: 1054 MG/Q2W
     Dates: start: 20060509

REACTIONS (6)
  - ABDOMINAL PAIN LOWER [None]
  - COMPLICATION OF DEVICE REMOVAL [None]
  - DEVICE MIGRATION [None]
  - GASTROINTESTINAL PERFORATION [None]
  - INTESTINAL PERFORATION [None]
  - RECTAL PERFORATION [None]
